FAERS Safety Report 5106580-5 (Version None)
Quarter: 2006Q3

REPORT INFORMATION
  Report Type: 
  Country: None (occurrence: None)
  Receive Date: 20060731
  Receipt Date: 20060414
  Transmission Date: 20061208
  Serious: Yes (Hospitalization)
  Sender: FDA-Public Use
  Company Number: US-JNJFOC-20060103457

PATIENT
  Age: 62 Year
  Sex: Female
  Weight: 99.7913 kg

DRUGS (6)
  1. RISPERDAL [Suspect]
     Indication: ANXIETY
     Dosage: 2 MG, 1 IN 1 DAY, ORAL
     Route: 048
     Dates: start: 20050701, end: 20051231
  2. LEXAPRO (SSRI) [Concomitant]
  3. PREDNISONE TAB [Concomitant]
  4. ALBUTEROL [Concomitant]
  5. ADVAIR DISKUS 100/50 [Concomitant]
  6. SEROQUEL [Concomitant]

REACTIONS (1)
  - PNEUMONIA [None]
